FAERS Safety Report 9230570 (Version 1)
Quarter: 2013Q2

REPORT INFORMATION
  Report Type: Spontaneous
  Country: JP (occurrence: None)
  Receive Date: 20130411
  Receipt Date: 20130411
  Transmission Date: 20140414
  Serious: Yes (Other)
  Sender: FDA-Public Use
  Company Number: 2013-000974

PATIENT
  Sex: Female

DRUGS (2)
  1. ACTONEL [Suspect]
     Route: 048
  2. PREDNISOLONE [Suspect]

REACTIONS (1)
  - Atypical femur fracture [None]
